FAERS Safety Report 25353218 (Version 2)
Quarter: 2025Q3

REPORT INFORMATION
  Report Type: Spontaneous
  Country: US (occurrence: US)
  Receive Date: 20250523
  Receipt Date: 20250716
  Transmission Date: 20251021
  Serious: No
  Sender: PFIZER
  Company Number: US-PFIZER INC-202500106049

PATIENT
  Age: 14 Year
  Sex: Female
  Weight: 44.45 kg

DRUGS (1)
  1. GENOTROPIN [Suspect]
     Active Substance: SOMATROPIN
     Indication: Growth disorder

REACTIONS (3)
  - Device information output issue [Unknown]
  - Device malfunction [Unknown]
  - Incorrect dose administered by device [Unknown]
